FAERS Safety Report 7306580-0 (Version None)
Quarter: 2011Q1

REPORT INFORMATION
  Report Type: 
  Country: None (occurrence: None)
  Receive Date: 20110222
  Receipt Date: 20110215
  Transmission Date: 20110831
  Serious: Yes (Other)
  Sender: FDA-Public Use
  Company Number: US-ROCHE-735736

PATIENT
  Sex: Male
  Weight: 86.2 kg

DRUGS (2)
  1. ACCUTANE [Suspect]
     Route: 065
     Dates: start: 20000301, end: 20000901
  2. ACCUTANE [Suspect]
     Indication: ACNE
     Route: 065
     Dates: start: 19991001

REACTIONS (15)
  - GASTROINTESTINAL INJURY [None]
  - INFLAMMATORY BOWEL DISEASE [None]
  - RHEUMATOID ARTHRITIS [None]
  - CROHN'S DISEASE [None]
  - COLITIS ULCERATIVE [None]
  - ANAL FISSURE [None]
  - FISTULA [None]
  - ADENOMA BENIGN [None]
  - IRRITABLE BOWEL SYNDROME [None]
  - VISUAL ACUITY REDUCED [None]
  - INTESTINAL PERFORATION [None]
  - PERIRECTAL ABSCESS [None]
  - INTESTINAL OBSTRUCTION [None]
  - HAEMORRHOIDS [None]
  - ANAL ABSCESS [None]
